FAERS Safety Report 11432718 (Version 1)
Quarter: 2015Q3

REPORT INFORMATION
  Report Type: Spontaneous
  Country: BR (occurrence: BR)
  Receive Date: 20150828
  Receipt Date: 20150828
  Transmission Date: 20151125
  Serious: Yes (Hospitalization, Other)
  Sender: FDA-Public Use
  Company Number: BR-CELGENE-BRA-2015083395

PATIENT
  Age: 64 Year
  Sex: Male

DRUGS (3)
  1. PREDNISONE. [Concomitant]
     Active Substance: PREDNISONE
     Indication: NEURITIS
     Route: 065
  2. THALOMID [Suspect]
     Active Substance: THALIDOMIDE
     Indication: LEPROSY
     Route: 048
  3. TESTOSTERONE. [Concomitant]
     Active Substance: TESTOSTERONE
     Indication: PRODUCT USED FOR UNKNOWN INDICATION
     Route: 065

REACTIONS (2)
  - Hypogonadism [Unknown]
  - Testicular pain [Recovering/Resolving]
